FAERS Safety Report 8780289 (Version 1)
Quarter: 2012Q4

REPORT INFORMATION
  Report Type: Spontaneous
  Country: GB (occurrence: None)
  Receive Date: 20120829
  Receipt Date: 20120829
  Transmission Date: 20130627
  Serious: Yes (Hospitalization, Other)
  Sender: FDA-Public Use
  Company Number: FK201202396

PATIENT
  Sex: Female

DRUGS (32)
  1. FUROSEMIDE [Suspect]
     Indication: PRODUCT USED FOR UNKNOWN INDICATION
  2. ATROPINE/DIPHENOXYLATE (LOMOTIL /00034001/) [Suspect]
     Indication: DIARRHEA
     Route: 048
  3. CARISOPRODOL [Suspect]
     Indication: PRODUCT USED FOR UNKNOWN INDICATION
  4. DIGOXIN [Suspect]
     Indication: PRODUCT USED FOR UNKNOWN INDICATION
     Route: 048
  5. METAXALONE [Suspect]
     Indication: PRODUCT USED FOR UNKNOWN INDICATION
  6. LORAZEPAM [Suspect]
     Indication: SLEEP DISORDER
     Dosage: 1 / 1 days
     Route: 048
  7. PREDNISONE [Suspect]
     Indication: PRODUCT USED FOR UNKNOWN INDICATION
     Route: 048
  8. SALMETROL/FLUTICASONE (SERETIDE /01420901/) [Suspect]
     Indication: PRODUCT USED FOR UNKNOWN INDICATION
     Dosage: 2 / 1 days
     Route: 054
  9. DICYCLOMINE DICYCLOVERINE) [Suspect]
     Indication: PRODUCT USED FOR UNKNOWN INDICATION
     Route: 048
  10. PHENOXYBENZAMNE (PHENOXYBENZAMINE) [Concomitant]
  11. CALCIUM CARBONATE PLUS VITAMIN D (LEKOVIT CA) [Concomitant]
  12. POTASSIUM CHLORIDE (POTASSIUM CHLORIDE) [Concomitant]
  13. SUCRALFATE (SUCRALFATE) [Concomitant]
  14. AMLODIPINE (AMLODIPINE) [Concomitant]
  15. ACETAMINOPHEN (PARACETAMOL) [Concomitant]
  16. ASPIRIN (ACETYLSALICYLIC ACID) [Concomitant]
  17. ESOMEPRAZOLE (ESOMEPRAZOLE) [Concomitant]
  18. EZETIMIBE (EZETIMIBE) [Concomitant]
  19. FENTANYL (FENTANYL) [Concomitant]
  20. SACCHAROMYCES BOULARDII (SACCHAROMYCES BOULARDII) [Concomitant]
  21. HYDROCODONE/ACETAMINOPHEN (REMEDEINE /01204101/) [Concomitant]
  22. ALBUTEROL (SALBUTAMOL) [Concomitant]
  23. LEVOTHYROXINE (LEVOTHYROXINE) [Concomitant]
  24. MEMANTINE (MEMANTINE) [Concomitant]
  25. PSYLLIUM (PLANTAGO AFRA) [Concomitant]
  26. METOLAZONE (METOLAZONE) [Concomitant]
  27. METOPROLOL SUCCINATE (METOPROLOL SUCCINATE) [Concomitant]
  28. METOPROLOL TARTRATE (METOPROLOL TARTRATE) [Concomitant]
  29. MULTIVITAMIN (VIGRAN) [Concomitant]
  30. ROSUVASTATIN (ROSUVASTATIN) [Concomitant]
  31. TERAPERATIDE [Concomitant]
  32. VITAMIN D (ERGOCALCIFEROL) [Concomitant]

REACTIONS (8)
  - Delirium [None]
  - Visual impairment [None]
  - Depression [None]
  - Urinary tract infection [None]
  - Weight decreased [None]
  - Constipation [None]
  - Dehydration [None]
  - Pseudodementia [None]
